FAERS Safety Report 10511144 (Version 1)
Quarter: 2014Q4

REPORT INFORMATION
  Report Type: Spontaneous
  Country: ES (occurrence: None)
  Receive Date: 20141008
  Receipt Date: 20141008
  Transmission Date: 20150528
  Serious: Yes (Hospitalization)
  Sender: FDA-Public Use
  Company Number: FK201403925

PATIENT
  Age: 82 Year
  Sex: Male

DRUGS (1)
  1. METHOTREXATE (MANUFACTURER UNKNOWN)(METHOTREXATE) (METHOTREXATE) [Suspect]
     Active Substance: METHOTREXATE
     Indication: RHEUMATOID ARTHRITIS
     Dosage: 1WK, ORAL??MORE THAN ONE MONTH
     Route: 048

REACTIONS (18)
  - Atelectasis [None]
  - Pulmonary sepsis [None]
  - Bacterial test positive [None]
  - Atrial fibrillation [None]
  - Blood bilirubin increased [None]
  - Toxicity to various agents [None]
  - Ecchymosis [None]
  - Stomatitis [None]
  - Aspartate aminotransferase increased [None]
  - Pleural effusion [None]
  - Bone marrow failure [None]
  - Haemorrhage [None]
  - Petechiae [None]
  - Melaena [None]
  - Legionella test positive [None]
  - Arthropathy [None]
  - Condition aggravated [None]
  - Alanine aminotransferase increased [None]
